FAERS Safety Report 24243874 (Version 1)
Quarter: 2024Q3

REPORT INFORMATION
  Report Type: Spontaneous
  Country: US (occurrence: None)
  Receive Date: 20240823
  Receipt Date: 20240823
  Transmission Date: 20241017
  Serious: Yes (Death)
  Sender: Public
  Company Number: None

PATIENT
  Age: 60 Year
  Sex: Male
  Weight: 79.2 kg

DRUGS (7)
  1. KEYTRUDA [Suspect]
     Active Substance: PEMBROLIZUMAB
     Indication: Tongue neoplasm malignant stage unspecified
     Dosage: 8 ML  EVERY 21 DAYS INTRACAVERNOUS
     Route: 017
     Dates: start: 20240212, end: 20240801
  2. ASPIRIN [Concomitant]
     Active Substance: ASPIRIN
  3. ZARXIO [Concomitant]
     Active Substance: FILGRASTIM-SNDZ
  4. CARBOPLATIN [Concomitant]
     Active Substance: CARBOPLATIN
  5. DEXAMETHASONE SOD PHOS [Concomitant]
  6. FLUOROURACIL [Concomitant]
     Active Substance: FLUOROURACIL
  7. PALONESTRON [Concomitant]

REACTIONS (1)
  - Death [None]

NARRATIVE: CASE EVENT DATE: 20240816
